FAERS Safety Report 8932733 (Version 4)
Quarter: 2013Q2

REPORT INFORMATION
  Report Type: Report from Study
  Country: FR (occurrence: FR)
  Receive Date: 20121129
  Receipt Date: 20130401
  Transmission Date: 20140414
  Serious: Yes (Hospitalization, Other)
  Sender: FDA-Public Use
  Company Number: FR-MILLENNIUM PHARMACEUTICALS, INC.-2012-08419

PATIENT
  Sex: 0

DRUGS (6)
  1. VELCADE [Suspect]
     Indication: MANTLE CELL LYMPHOMA
     Dosage: 2.4 MG, UNK
     Route: 058
     Dates: start: 20111212
  2. VELCADE [Suspect]
     Dosage: 2.5 MG, UNK
     Route: 065
     Dates: start: 20120109, end: 20120206
  3. VELCADE [Suspect]
     Dosage: 1.85 UNK, UNK
     Route: 065
     Dates: start: 20120312
  4. VELCADE [Suspect]
     Dosage: 2.5 UNK, UNK
     Route: 065
     Dates: start: 20120416, end: 20120525
  5. MABTHERA [Suspect]
     Indication: MANTLE CELL LYMPHOMA
     Dosage: 700 MG, UNK
     Route: 042
     Dates: start: 20120522, end: 20120522
  6. LEVACT [Suspect]
     Indication: MANTLE CELL LYMPHOMA
     Dosage: 220 MG, UNK
     Route: 042
     Dates: start: 20120522, end: 20120523

REACTIONS (1)
  - Lung adenocarcinoma [Recovered/Resolved]
